FAERS Safety Report 8984232 (Version 1)
Quarter: 2012Q4

REPORT INFORMATION
  Report Type: Spontaneous
  Country: DK (occurrence: None)
  Receive Date: 20121212
  Receipt Date: 20121212
  Transmission Date: 20130627
  Serious: Yes (Other)
  Sender: FDA-Public Use
  Company Number: 2012MA013919

PATIENT
  Age: 29 Year
  Sex: Female

DRUGS (5)
  1. ACETAMINOPHEN + CODEINE PHOSPHATE [Suspect]
     Indication: PAIN
     Dates: start: 20090106
  2. OMEPRAZOLE [Suspect]
     Indication: PROPHYLAXIS AGAINST GASTROINTESTINAL ULCER
     Dates: start: 20081016
  3. FOLIC ACID [Suspect]
     Indication: PREGNANCY
     Dates: start: 200905
  4. PREGABALIN [Suspect]
     Indication: PAIN
     Dosage: 2 cap; BID
     Dates: start: 20080815
  5. HYDROXOCOBALAMIN [Suspect]
     Indication: VITAMIN B12 DEFICIENCY
     Dates: start: 20091216

REACTIONS (7)
  - Pregnancy [None]
  - Pelvic pain [None]
  - Haemorrhage in pregnancy [None]
  - Induced labour [None]
  - Forceps delivery [None]
  - Exposure during pregnancy [None]
  - Infection [None]
